FAERS Safety Report 5032232-6 (Version None)
Quarter: 2006Q2

REPORT INFORMATION
  Report Type: 
  Country: None (occurrence: None)
  Receive Date: 20060619
  Receipt Date: 20060612
  Transmission Date: 20061013
  Serious: Yes (Other)
  Sender: FDA-Public Use
  Company Number: 2006074180

PATIENT
  Age: 17 Year
  Sex: Female

DRUGS (1)
  1. LISTERINE (MENTHOL, METHYL SALICYLATE, EUCALYPTOL, THYMOL) [Suspect]
     Indication: EUPHORIC MOOD
     Dosage: ABOUT 6 CAPFULS ONCE, ORAL
     Route: 048
     Dates: start: 20060609, end: 20060609

REACTIONS (4)
  - DRUG ABUSER [None]
  - INCORRECT ROUTE OF DRUG ADMINISTRATION [None]
  - INTENTIONAL DRUG MISUSE [None]
  - VOMITING [None]
